FAERS Safety Report 12691399 (Version 5)
Quarter: 2016Q4

REPORT INFORMATION
  Report Type: Report from Study
  Country: CN (occurrence: CN)
  Receive Date: 20160826
  Receipt Date: 20161118
  Transmission Date: 20170207
  Serious: Yes (Hospitalization)
  Sender: FDA-Public Use
  Company Number: CN-AMGEN-CHNCT2016110559

PATIENT
  Age: 68 Year
  Sex: Female
  Weight: 62 kg

DRUGS (24)
  1. FRUSEMIDE [Concomitant]
     Active Substance: FUROSEMIDE
     Indication: HYPERKALAEMIA
  2. VITAMIN B6 [Concomitant]
     Active Substance: PYRIDOXINE HYDROCHLORIDE
     Indication: NUTRITIONAL SUPPLEMENTATION
     Dosage: 200 MG, QD
     Route: 042
     Dates: start: 20150404, end: 20150420
  3. ALLOPURINOL. [Concomitant]
     Active Substance: ALLOPURINOL
     Indication: HYPERURICAEMIA
     Dosage: 100 MG, TID
     Route: 048
     Dates: start: 20050403, end: 20150413
  4. MUCOSOLVAN [Concomitant]
     Active Substance: AMBROXOL HYDROCHLORIDE
     Indication: PRODUCTIVE COUGH
     Dosage: 30 MG, BID
     Route: 042
     Dates: start: 20150404, end: 20150420
  5. VORICONAZOLE. [Concomitant]
     Active Substance: VORICONAZOLE
     Indication: PNEUMONIA
     Dosage: 200 MG, UNK
     Route: 048
     Dates: start: 20150405, end: 20150610
  6. BUDESONIDE. [Concomitant]
     Active Substance: BUDESONIDE
     Indication: PRODUCTIVE COUGH
  7. PREDNISONE. [Suspect]
     Active Substance: PREDNISONE
     Indication: PLASMA CELL MYELOMA
     Dosage: 100 MG, PER CHEMO REGIM
     Route: 048
     Dates: start: 20140929
  8. FRUSEMIDE [Concomitant]
     Active Substance: FUROSEMIDE
     Indication: OEDEMA
     Dosage: 20 MG, UNK
     Dates: start: 20150403, end: 20150507
  9. PIPERACILLIN AND TAZOBACTAM [Concomitant]
     Active Substance: PIPERACILLIN SODIUM\TAZOBACTAM SODIUM
     Indication: LUNG INFECTION
     Dosage: 4.5 G, TID
     Route: 042
     Dates: start: 20150407, end: 20150421
  10. CARFILZOMIB [Suspect]
     Active Substance: CARFILZOMIB
     Indication: PLASMA CELL MYELOMA
     Dosage: 36 MG/M2, PER CHEMO REGIM
     Route: 042
     Dates: start: 20140929
  11. BUDESONIDE. [Concomitant]
     Active Substance: BUDESONIDE
     Indication: COUGH
     Dosage: 1 MG, QD
     Route: 055
     Dates: start: 20150412, end: 20150420
  12. MOXIFLOXACIN HYDROCHLORIDE. [Concomitant]
     Active Substance: MOXIFLOXACIN HYDROCHLORIDE
     Indication: INFLAMMATION
     Dosage: 200-400 MG, QD
     Route: 048
     Dates: start: 20150321, end: 20150427
  13. FAMCICLOVIR. [Concomitant]
     Active Substance: FAMCICLOVIR
     Indication: PROPHYLAXIS
     Dosage: 0.25 MG, BID
     Route: 048
     Dates: start: 20141009
  14. DOMPERIDONE [Concomitant]
     Active Substance: DOMPERIDONE
     Indication: GASTRIC DISORDER
     Dosage: 10 G, TID
     Route: 048
     Dates: start: 20150326, end: 20150521
  15. VITAMIN C [Concomitant]
     Active Substance: ASCORBIC ACID
     Indication: NUTRITIONAL SUPPLEMENTATION
     Dosage: 2 G, QD
     Route: 042
     Dates: start: 20150404, end: 20150420
  16. FRUSEMIDE [Concomitant]
     Active Substance: FUROSEMIDE
     Indication: DIURETIC THERAPY
  17. SPIRONOLACTONE. [Concomitant]
     Active Substance: SPIRONOLACTONE
     Indication: OEDEMA
     Dosage: 20 MG, QD
     Route: 048
     Dates: start: 20150403, end: 20150730
  18. TROPISETRON HYDROCHLORIDE [Concomitant]
     Active Substance: TROPISETRON HYDROCHLORIDE
     Indication: PROPHYLAXIS OF NAUSEA AND VOMITING
     Dosage: 5 MG, QD
     Route: 042
     Dates: start: 20150409, end: 20150430
  19. METOCLOPRAMIDE DIHYDROCHLORIDE [Concomitant]
     Indication: PROPHYLAXIS OF NAUSEA AND VOMITING
     Dosage: 10 MG, QD
     Route: 030
     Dates: start: 20150408, end: 20150416
  20. MELPHALAN [Suspect]
     Active Substance: MELPHALAN
     Indication: PLASMA CELL MYELOMA
     Dosage: 14 MG, PER CHEMO REGIM
     Route: 048
     Dates: start: 20140929
  21. AMLODIPINE BESYLATE. [Concomitant]
     Active Substance: AMLODIPINE BESYLATE
     Indication: HYPERTENSION
     Dosage: 5 MG, QD
     Route: 048
     Dates: start: 20150406, end: 20150421
  22. POTASSIUM CHLORIDE. [Concomitant]
     Active Substance: POTASSIUM CHLORIDE
     Indication: NUTRITIONAL SUPPLEMENTATION
     Dosage: 10 ML, QD
     Route: 042
     Dates: start: 20150404, end: 20150420
  23. PIPERACILLIN SODIUM [Concomitant]
     Active Substance: PIPERACILLIN SODIUM
     Indication: LUNG INFECTION
     Dosage: 2.5 G, TID
     Route: 042
     Dates: start: 20150405, end: 20150407
  24. CHLORPHENAMINE MALEATE [Concomitant]
     Active Substance: CHLORPHENIRAMINE MALEATE
     Indication: ALLERGY PROPHYLAXIS
     Dosage: 8 MG, QD
     Route: 048
     Dates: start: 20150404, end: 20150417

REACTIONS (2)
  - Pancytopenia [Recovered/Resolved]
  - Renal failure [Recovered/Resolved]

NARRATIVE: CASE EVENT DATE: 20150415
